FAERS Safety Report 18446132 (Version 1)
Quarter: 2020Q4

REPORT INFORMATION
  Report Type: Spontaneous
  Country: US (occurrence: US)
  Receive Date: 20201030
  Receipt Date: 20201030
  Transmission Date: 20210114
  Serious: Yes (Hospitalization)
  Sender: FDA-Public Use
  Company Number: None

PATIENT
  Age: 60 Year
  Sex: Male
  Weight: 95 kg

DRUGS (2)
  1. VENCLEXTA [Concomitant]
     Active Substance: VENETOCLAX
     Dates: start: 20201006, end: 20201029
  2. FARYDAK [Suspect]
     Active Substance: PANOBINOSTAT
     Indication: PLASMA CELL LEUKAEMIA
     Dosage: ?          OTHER FREQUENCY:THREE TIMES WEEKLY;?
     Route: 048
     Dates: start: 20201006, end: 20201029

REACTIONS (6)
  - Abdominal pain [None]
  - Hypophagia [None]
  - Pancreatitis [None]
  - Pyrexia [None]
  - Off label use [None]
  - Fatigue [None]

NARRATIVE: CASE EVENT DATE: 20201018
